FAERS Safety Report 20762591 (Version 1)
Quarter: 2022Q2

REPORT INFORMATION
  Report Type: Other
  Country: CA (occurrence: CA)
  Receive Date: 20220428
  Receipt Date: 20220428
  Transmission Date: 20220721
  Serious: Yes (Other)
  Sender: FDA-Public Use
  Company Number: CA-CELLTRION INC.-2022CA005275

PATIENT

DRUGS (2)
  1. TRUXIMA [Suspect]
     Active Substance: RITUXIMAB-ABBS
     Indication: Cold type haemolytic anaemia
     Dosage: 375 MG/M2 X 1.68=630MG ON DAY 1
  2. BENDAMUSTINE [Suspect]
     Active Substance: BENDAMUSTINE
     Indication: Cold type haemolytic anaemia
     Dosage: 90 MG/M2X1.68=150MG ON DAY 1 AND 2 OF 28 CYCLES FOR 4 CYCLES

REACTIONS (4)
  - Cold type haemolytic anaemia [Unknown]
  - Insurance issue [Unknown]
  - Inability to afford medication [Unknown]
  - Off label use [Unknown]
